FAERS Safety Report 19089565 (Version 1)
Quarter: 2021Q2

REPORT INFORMATION
  Report Type: Report from Study
  Country: NG (occurrence: NG)
  Receive Date: 20210403
  Receipt Date: 20210403
  Transmission Date: 20210717
  Serious: Yes (Death)
  Sender: FDA-Public Use
  Company Number: NVSC2021NG053025

PATIENT
  Age: 67 Year
  Sex: Male

DRUGS (2)
  1. UPERIO [Suspect]
     Active Substance: SACUBITRIL\VALSARTAN
     Indication: MYOCARDIAL ISCHAEMIA
     Dosage: 50 MG, BID (24/ 26 MG)
     Route: 048
     Dates: start: 20201023
  2. UPERIO [Suspect]
     Active Substance: SACUBITRIL\VALSARTAN
     Indication: HYPERTENSIVE HEART DISEASE

REACTIONS (3)
  - Product use in unapproved indication [Unknown]
  - Death [Fatal]
  - Insomnia [Unknown]

NARRATIVE: CASE EVENT DATE: 202102
